FAERS Safety Report 22021537 (Version 1)
Quarter: 2023Q1

REPORT INFORMATION
  Report Type: Spontaneous
  Country: US (occurrence: None)
  Receive Date: 20230220
  Receipt Date: 20230220
  Transmission Date: 20230418
  Serious: No
  Sender: FDA-Public Use
  Company Number: None

PATIENT
  Age: 78 Year
  Sex: Male
  Weight: 89.99 kg

DRUGS (21)
  1. ABIRATERONE [Suspect]
     Active Substance: ABIRATERONE
     Indication: Prostate cancer
     Dosage: FREQUENCY : DAILY;?
     Route: 048
     Dates: start: 201909
  2. ALPRAZOLAM [Concomitant]
  3. ASPIRIN [Concomitant]
  4. ATORVASTATIN [Concomitant]
  5. BICALUTAMIDE [Concomitant]
  6. COENZYME Q10 [Concomitant]
     Active Substance: DIETARY SUPPLEMENT\UBIDECARENONE
  7. DOCUSATE SODIUM [Concomitant]
  8. FERROUS SULFATE [Concomitant]
  9. FEXOFENADINE [Concomitant]
  10. FISH OIL [Concomitant]
  11. FLUTICASONE [Concomitant]
  12. FUROSEMIDE [Concomitant]
  13. LOSARTAN [Concomitant]
  14. MECLIZINE [Concomitant]
  15. METOPROLOL [Concomitant]
  16. MONTELUKAST [Concomitant]
  17. NITROGLYCERIN [Concomitant]
  18. OMEPRAZOLE [Concomitant]
  19. ONDANSETRON [Concomitant]
  20. SAW PALMETTO [Concomitant]
  21. WARFARIN [Concomitant]

REACTIONS (4)
  - Asthenia [None]
  - Pain in extremity [None]
  - Arthralgia [None]
  - COVID-19 [None]
